FAERS Safety Report 19099803 (Version 1)
Quarter: 2021Q2

REPORT INFORMATION
  Report Type: Spontaneous
  Country: US (occurrence: US)
  Receive Date: 20210406
  Receipt Date: 20210406
  Transmission Date: 20210717
  Serious: Yes (Hospitalization, Other)
  Sender: FDA-Public Use
  Company Number: US-APOTEX-2021AP008012

PATIENT
  Age: 28 Year
  Sex: Male

DRUGS (2)
  1. CLOBAZAM. [Suspect]
     Active Substance: CLOBAZAM
     Indication: SEIZURE
     Dosage: UNK 5 MG TWICE DAILY WITH TITRATION UP TO 10 MG TWICE A DAY OVER THE NEXT TWO WEEKS
     Route: 065
  2. DIAZEPAM. [Suspect]
     Active Substance: DIAZEPAM
     Indication: SEIZURE
     Dosage: DAILY OR EVERY OTHER DAY
     Route: 054

REACTIONS (3)
  - Somnolence [Unknown]
  - Pneumonia aspiration [Recovered/Resolved]
  - Salivary hypersecretion [Unknown]
